FAERS Safety Report 5642985-1 (Version None)
Quarter: 2008Q1

REPORT INFORMATION
  Report Type: 
  Country: None (occurrence: None)
  Receive Date: 20080228
  Receipt Date: 20080222
  Transmission Date: 20080703
  Serious: Yes (Other)
  Sender: FDA-Public Use
  Company Number: B0505336A

PATIENT
  Age: 6 Year
  Sex: Female
  Weight: 20 kg

DRUGS (5)
  1. RELENZA [Suspect]
     Indication: INFLUENZA
     Dosage: 10MG TWICE PER DAY
     Route: 055
     Dates: start: 20080121, end: 20080122
  2. ASVERIN [Concomitant]
     Indication: BRONCHITIS
     Dosage: .48G PER DAY
     Route: 048
     Dates: start: 20080121, end: 20080129
  3. PERIACTIN [Concomitant]
     Indication: RHINITIS
     Dosage: .6G PER DAY
     Route: 048
     Dates: start: 20080121, end: 20080129
  4. MUCODYNE [Concomitant]
     Indication: BRONCHITIS
     Dosage: .48G PER DAY
     Route: 048
     Dates: start: 20080121, end: 20080129
  5. BIOFERMIN R [Concomitant]
     Indication: ENTEROCOLITIS
     Dosage: 2.1G PER DAY
     Route: 048
     Dates: start: 20080123, end: 20080129

REACTIONS (4)
  - ABNORMAL BEHAVIOUR [None]
  - PYREXIA [None]
  - SOLILOQUY [None]
  - TREMOR [None]
